FAERS Safety Report 7714443 (Version 3)
Quarter: 2013Q4

REPORT INFORMATION
  Report Type: Report from Study
  Country: IT (occurrence: IT)
  Receive Date: 20101216
  Receipt Date: 20131114
  Transmission Date: 20140711
  Serious: Yes (Death)
  Sender: FDA-Public Use
  Company Number: IT-ALEXION PHARMACEUTICALS INC.-A201001577

PATIENT
  Sex: Male

DRUGS (2)
  1. SOLIRIS [Suspect]
     Indication: THROMBOTIC MICROANGIOPATHY
     Dosage: 900 MG
     Route: 042
     Dates: start: 20101020
  2. SOLIRIS [Suspect]
     Indication: OFF LABEL USE
     Dosage: UNK
     Route: 042
     Dates: end: 20101115

REACTIONS (7)
  - Bronchopulmonary aspergillosis [Fatal]
  - Graft versus host disease [Fatal]
  - Condition aggravated [Fatal]
  - Oxygen saturation decreased [Fatal]
  - Haemoptysis [Fatal]
  - Pneumonia [Fatal]
  - Off label use [Unknown]
